FAERS Safety Report 6593430-3 (Version None)
Quarter: 2010Q1

REPORT INFORMATION
  Report Type: 
  Country: None (occurrence: None)
  Receive Date: 20100222
  Receipt Date: 20090424
  Transmission Date: 20100710
  Serious: No
  Sender: FDA-Public Use
  Company Number: US-BRISTOL-MYERS SQUIBB COMPANY-14594816

PATIENT
  Age: 51 Year
  Sex: Female
  Weight: 91 kg

DRUGS (2)
  1. ORENCIA [Suspect]
     Indication: RHEUMATOID ARTHRITIS
     Dosage: RECEIVED 3 INFUSIONS IN 3 MONTHS
     Route: 042
     Dates: start: 20080619
  2. METHOTREXATE [Concomitant]

REACTIONS (1)
  - ASTHMA [None]
